FAERS Safety Report 8054694-2 (Version None)
Quarter: 2012Q1

REPORT INFORMATION
  Report Type: 
  Country: None (occurrence: None)
  Receive Date: 20120119
  Receipt Date: 20120112
  Transmission Date: 20120608
  Serious: No
  Sender: FDA-Public Use
  Company Number: US-PFIZER INC-2012002730

PATIENT
  Sex: Female
  Weight: 64.853 kg

DRUGS (5)
  1. LYRICA [Suspect]
     Dosage: 300 MG, 1X/DAY
     Route: 048
     Dates: end: 20090101
  2. LYRICA [Suspect]
     Indication: FIBROMYALGIA
     Dosage: 75 MG, 1X/DAY
     Route: 048
     Dates: start: 20080101
  3. PERCOCET [Concomitant]
     Indication: PAIN
     Dosage: UNK
  4. PHENIRAMINE [Concomitant]
     Dosage: UNK
  5. LEVATOL [Concomitant]
     Dosage: UNK

REACTIONS (1)
  - DRUG INEFFECTIVE [None]
